FAERS Safety Report 12421224 (Version 1)
Quarter: 2016Q2

REPORT INFORMATION
  Report Type: Spontaneous
  Country: US (occurrence: US)
  Receive Date: 20160531
  Receipt Date: 20160531
  Transmission Date: 20160815
  Serious: Yes (Other)
  Sender: FDA-Public Use
  Company Number: US-BAYER-2016-104969

PATIENT
  Age: 22 Year
  Sex: Female
  Weight: 61.22 kg

DRUGS (1)
  1. AFRIN NO DRIP EXTRA MOISTURIZING [Suspect]
     Active Substance: OXYMETAZOLINE HYDROCHLORIDE
     Indication: NASAL CONGESTION
     Dosage: 1 DF, QID
     Dates: start: 2010

REACTIONS (3)
  - Product use issue [None]
  - Drug dependence [Unknown]
  - Product use issue [None]

NARRATIVE: CASE EVENT DATE: 2010
